FAERS Safety Report 25506970 (Version 1)
Quarter: 2025Q3

REPORT INFORMATION
  Report Type: Spontaneous
  Country: EU (occurrence: EU)
  Receive Date: 20250702
  Receipt Date: 20250702
  Transmission Date: 20251020
  Serious: Yes (Hospitalization, Other)
  Sender: SANOFI AVENTIS
  Company Number: EU-SANOFI-02568650

PATIENT
  Age: 68 Year
  Sex: Male

DRUGS (3)
  1. TOUJEO [Suspect]
     Active Substance: INSULIN GLARGINE
     Indication: Diabetes mellitus
     Route: 065
  2. GLYBURIDE [Suspect]
     Active Substance: GLYBURIDE
     Indication: Diabetes mellitus
     Dosage: 1 DF, BID MORNING AND EVENING
     Route: 065
  3. ASPIRIN LYSINE [Concomitant]
     Active Substance: ASPIRIN LYSINE

REACTIONS (5)
  - Leg amputation [Unknown]
  - Loss of consciousness [Unknown]
  - Sleep disorder due to general medical condition, insomnia type [Unknown]
  - Blood glucose increased [Not Recovered/Not Resolved]
  - Visual impairment [Not Recovered/Not Resolved]

NARRATIVE: CASE EVENT DATE: 20250101
